FAERS Safety Report 8273490-4 (Version None)
Quarter: 2012Q2

REPORT INFORMATION
  Report Type: 
  Country: None (occurrence: None)
  Receive Date: 20120411
  Receipt Date: 20120402
  Transmission Date: 20120825
  Serious: Yes (Hospitalization)
  Sender: FDA-Public Use
  Company Number: IT-JNJFOC-20120109771

PATIENT
  Age: 51 Year
  Sex: Male

DRUGS (1)
  1. REMICADE [Suspect]
     Indication: RETINAL VASCULITIS
     Dosage: 44TH INFUSION, 50 CC/HR
     Route: 042
     Dates: start: 20120118, end: 20120118

REACTIONS (7)
  - HYPERTENSION [None]
  - MALAISE [None]
  - MUSCLE SPASMS [None]
  - CHEST PAIN [None]
  - DYSPNOEA [None]
  - TACHYCARDIA [None]
  - INFUSION RELATED REACTION [None]
